FAERS Safety Report 25461635 (Version 1)
Quarter: 2025Q2

REPORT INFORMATION
  Report Type: Spontaneous
  Country: AU (occurrence: AU)
  Receive Date: 20250620
  Receipt Date: 20250620
  Transmission Date: 20250717
  Serious: Yes (Other)
  Sender: SANDOZ
  Company Number: AU-AMGEN-AUSSP2025101400

PATIENT
  Age: 62 Year
  Sex: Male

DRUGS (8)
  1. ADALIMUMAB [Suspect]
     Active Substance: ADALIMUMAB
     Indication: Pyoderma gangrenosum
     Route: 065
  2. CYCLOSPORINE [Concomitant]
     Active Substance: CYCLOSPORINE
     Indication: Pyoderma gangrenosum
     Route: 065
  3. CODEINE [Concomitant]
     Active Substance: CODEINE
     Indication: Pyoderma gangrenosum
     Route: 065
  4. DAPSONE [Concomitant]
     Active Substance: DAPSONE
     Indication: Pyoderma gangrenosum
     Route: 065
  5. MYCOPHENOLATE MOFETIL [Concomitant]
     Active Substance: MYCOPHENOLATE MOFETIL
     Indication: Pyoderma gangrenosum
     Route: 065
  6. ACETAMINOPHEN [Concomitant]
     Active Substance: ACETAMINOPHEN
     Indication: Pyoderma gangrenosum
     Route: 065
  7. PENTOXIFYLLINE [Concomitant]
     Active Substance: PENTOXIFYLLINE
     Indication: Pyoderma gangrenosum
     Route: 065
  8. PREDNISOLONE [Concomitant]
     Active Substance: PREDNISOLONE
     Indication: Pyoderma gangrenosum
     Route: 065

REACTIONS (2)
  - Pyoderma gangrenosum [Unknown]
  - Off label use [Unknown]
